FAERS Safety Report 6971080-4 (Version None)
Quarter: 2010Q3

REPORT INFORMATION
  Report Type: 
  Country: None (occurrence: None)
  Receive Date: 20100908
  Receipt Date: 20100831
  Transmission Date: 20110219
  Serious: No
  Sender: FDA-Public Use
  Company Number: BR-US-EMD SERONO, INC.-7016473

PATIENT
  Sex: Female

DRUGS (2)
  1. REBIF [Suspect]
     Indication: MULTIPLE SCLEROSIS
     Route: 058
     Dates: start: 20020101
  2. ESTROGENON [Concomitant]

REACTIONS (4)
  - LABYRINTHITIS [None]
  - MALAISE [None]
  - MENINGIOMA [None]
  - SOMNOLENCE [None]
